FAERS Safety Report 4924160-9 (Version None)
Quarter: 2006Q1

REPORT INFORMATION
  Report Type: 
  Country: None (occurrence: None)
  Receive Date: 20060227
  Receipt Date: 20051129
  Transmission Date: 20060701
  Serious: No
  Sender: FDA-Public Use
  Company Number: US-GLAXOSMITHKLINE-A0583852A

PATIENT
  Age: 55 Year
  Sex: Female
  Weight: 70.9 kg

DRUGS (5)
  1. WELLBUTRIN XL [Suspect]
     Indication: DEPRESSION
     Dosage: 150MG PER DAY
     Route: 048
     Dates: start: 20051127
  2. TOPROL-XL [Concomitant]
  3. TRIAMTERENE [Concomitant]
  4. LOVASTATIN [Concomitant]
  5. VITAMINS [Concomitant]

REACTIONS (8)
  - DISTURBANCE IN ATTENTION [None]
  - INSOMNIA [None]
  - MUSCLE TIGHTNESS [None]
  - NERVOUSNESS [None]
  - RESTLESSNESS [None]
  - TENSION [None]
  - THINKING ABNORMAL [None]
  - TREMOR [None]
